FAERS Safety Report 22036496 (Version 1)
Quarter: 2023Q1

REPORT INFORMATION
  Report Type: Report from Study
  Country: US (occurrence: US)
  Receive Date: 20230225
  Receipt Date: 20230225
  Transmission Date: 20230417
  Serious: No
  Sender: FDA-Public Use
  Company Number: US-002147023-NVSC2023US040752

PATIENT
  Sex: Male

DRUGS (1)
  1. ENTRESTO [Suspect]
     Active Substance: SACUBITRIL\VALSARTAN
     Indication: Product used for unknown indication
     Route: 065

REACTIONS (9)
  - Dyspnoea paroxysmal nocturnal [Unknown]
  - Rash [Unknown]
  - Dyspnoea [Unknown]
  - Fatigue [Unknown]
  - Chest pain [Unknown]
  - Headache [Unknown]
  - Visual impairment [Unknown]
  - Orthopnoea [Unknown]
  - COVID-19 [Unknown]
